FAERS Safety Report 25897368 (Version 1)
Quarter: 2025Q4

REPORT INFORMATION
  Report Type: Spontaneous
  Country: ID (occurrence: ID)
  Receive Date: 20251008
  Receipt Date: 20251008
  Transmission Date: 20260117
  Serious: Yes (Death, Hospitalization, Other)
  Sender: GLAND PHARMA LTD
  Company Number: ID-GLANDPHARMA-ID-2025GLNLIT01969

PATIENT
  Age: 35 Year
  Sex: Female

DRUGS (1)
  1. ZOLEDRONIC ACID [Suspect]
     Active Substance: ZOLEDRONIC ACID
     Indication: Metastases to bone
     Route: 065
     Dates: start: 2020

REACTIONS (5)
  - Cardiac arrest [Fatal]
  - Ventricular tachycardia [Fatal]
  - Hypokalaemia [Fatal]
  - Bicytopenia [Fatal]
  - Atrioventricular block second degree [Fatal]
